FAERS Safety Report 5123365-4 (Version None)
Quarter: 2006Q4

REPORT INFORMATION
  Report Type: 
  Country: None (occurrence: None)
  Receive Date: 20061005
  Receipt Date: 20060925
  Transmission Date: 20070319
  Serious: No
  Sender: FDA-Public Use
  Company Number: 2006-148436-NL

PATIENT
  Age: 62 Year
  Sex: Male

DRUGS (1)
  1. MIRTAZAPINE [Suspect]
     Indication: DEPRESSION
     Dosage: 15 MG/30 MG ORAL
     Route: 048
     Dates: start: 20060901, end: 20060901

REACTIONS (3)
  - EYE PAIN [None]
  - INTRAOCULAR PRESSURE INCREASED [None]
  - VISION BLURRED [None]
